FAERS Safety Report 23520435 (Version 1)
Quarter: 2024Q1

REPORT INFORMATION
  Report Type: 
  Country: None (occurrence: None)
  Receive Date: 20240214
  Receipt Date: 20240214
  Transmission Date: 20240410
  Serious: No
  Sender: FDA-Public Use
  Company Number: CA-002147023-NVSC2024CA026953

PATIENT

DRUGS (1)
  1. LUCENTIS [Suspect]
     Active Substance: RANIBIZUMAB
     Dosage: UNK, LAST INJECTION WAS WITH LUCENTIS ON DEC 6TH
     Dates: start: 20200925, end: 20231206

REACTIONS (1)
  - Death [None]

NARRATIVE: CASE EVENT DATE: 20240127
